FAERS Safety Report 25683767 (Version 2)
Quarter: 2025Q4

REPORT INFORMATION
  Report Type: Spontaneous
  Country: JP (occurrence: JP)
  Receive Date: 20250814
  Receipt Date: 20251023
  Transmission Date: 20260117
  Serious: Yes (Other)
  Sender: NOVO NORDISK
  Company Number: JP-NOVOPROD-1494577

PATIENT
  Age: 48 Year
  Sex: Female
  Weight: 41 kg

DRUGS (12)
  1. OZEMPIC [Suspect]
     Active Substance: SEMAGLUTIDE
     Indication: Pancreatogenous diabetes
     Dosage: 0.5 MG, QW
     Route: 058
     Dates: start: 20240222
  2. TRESIBA [Suspect]
     Active Substance: INSULIN DEGLUDEC
     Dosage: 20 UT/ 3 TIMES A WEEK
     Route: 058
     Dates: start: 202103
  3. TRESIBA [Suspect]
     Active Substance: INSULIN DEGLUDEC
     Dosage: 10 UT/ 3 TIMES A WEEK
     Route: 058
  4. TRESIBA [Suspect]
     Active Substance: INSULIN DEGLUDEC
     Indication: Pancreatogenous diabetes
     Dosage: UNK
     Route: 058
  5. PANCRELIPASE [Suspect]
     Active Substance: PANCRELIPASE
     Indication: Pancreatitis chronic
     Dosage: 600 MG, QD
     Dates: start: 20250609, end: 20250630
  6. INDERAL [Concomitant]
     Active Substance: PROPRANOLOL HYDROCHLORIDE
     Indication: Sinus tachycardia
     Dosage: 20 MG, QD
     Route: 048
     Dates: start: 202502
  7. CALCIUM POLYSTYRENE SULFONATE [Concomitant]
     Active Substance: CALCIUM POLYSTYRENE SULFONATE
     Indication: Hyperkalaemia
     Dosage: 2 DF/DAY
     Route: 048
     Dates: start: 20250514
  8. POLAPREZINC [Concomitant]
     Active Substance: POLAPREZINC
     Indication: Zinc deficiency
     Dosage: 150 MG, QD
     Route: 048
     Dates: start: 20250606
  9. SENNOSIDES [Concomitant]
     Active Substance: SENNOSIDES
     Indication: Constipation
     Dosage: 12 MG, QD
     Route: 048
     Dates: start: 20250612
  10. DAYVIGO [Concomitant]
     Active Substance: LEMBOREXANT
     Indication: Insomnia
     Dosage: 5 MG, QD
     Route: 048
     Dates: start: 20250606, end: 20250707
  11. TECFIDERA [Concomitant]
     Active Substance: DIMETHYL FUMARATE
     Indication: Multiple sclerosis
     Dosage: 480 MG, QD
     Route: 048
     Dates: end: 20250708
  12. INSULIN ICODEC [Concomitant]
     Active Substance: INSULIN ICODEC
     Indication: Product used for unknown indication
     Dosage: UNK

REACTIONS (6)
  - Hypoglycaemic coma [Recovered/Resolved]
  - Hepatic function abnormal [Recovering/Resolving]
  - Product use in unapproved indication [Not Recovered/Not Resolved]
  - Off label use [Unknown]
  - Overdose [Unknown]
  - Product dose omission issue [Unknown]

NARRATIVE: CASE EVENT DATE: 20240222
